FAERS Safety Report 17842634 (Version 1)
Quarter: 2020Q2

REPORT INFORMATION
  Report Type: Report from Study
  Country: AR (occurrence: AR)
  Receive Date: 20200529
  Receipt Date: 20200529
  Transmission Date: 20200714
  Serious: Yes (Other)
  Sender: FDA-Public Use
  Company Number: AR-JNJFOC-20200532212

PATIENT
  Age: 77 Year
  Sex: Male

DRUGS (5)
  1. ATORVASTATIN [Concomitant]
     Active Substance: ATORVASTATIN
  2. BISOPROLOL [Concomitant]
     Active Substance: BISOPROLOL
  3. ASPIRINA PREVENT [Concomitant]
     Active Substance: ASPIRIN
     Dosage: 100 MG
     Route: 065
  4. ENALAPRIL [Concomitant]
     Active Substance: ENALAPRIL
  5. RIVAROXABAN [Suspect]
     Active Substance: RIVAROXABAN
     Indication: ATRIAL FIBRILLATION
     Dosage: 15 MG, QD
     Route: 048
     Dates: start: 20200518

REACTIONS (5)
  - Prescribed underdose [Unknown]
  - Off label use [Unknown]
  - Transaminases increased [Unknown]
  - Dysuria [Unknown]
  - Urinary incontinence [Unknown]

NARRATIVE: CASE EVENT DATE: 20200520
